FAERS Safety Report 15587253 (Version 2)
Quarter: 2018Q4

REPORT INFORMATION
  Report Type: Report from Study
  Country: JP (occurrence: JP)
  Receive Date: 20181105
  Receipt Date: 20181221
  Transmission Date: 20190205
  Serious: Yes (Death, Hospitalization)
  Sender: FDA-Public Use
  Company Number: JP-ASTRAZENECA-2018SF44908

PATIENT
  Age: 29532 Day
  Sex: Male

DRUGS (12)
  1. MAGNESIUM OXIDE. [Concomitant]
     Active Substance: MAGNESIUM OXIDE
     Indication: CONSTIPATION
     Dosage: 330.0MG AS REQUIRED
     Route: 048
     Dates: start: 20180829
  2. MIYA-BM [Concomitant]
     Active Substance: CLOSTRIDIUM BUTYRICUM SPORES STRAIN M-55
     Indication: CONSTIPATION
     Route: 048
  3. LIVACT [Concomitant]
     Active Substance: AMINO ACIDS
     Indication: HYPOALBUMINAEMIA
     Route: 048
  4. ENSURE H [Concomitant]
     Indication: DECREASED APPETITE
     Route: 048
     Dates: start: 20180906
  5. PREDONINE [Concomitant]
     Active Substance: PREDNISOLONE
     Indication: NAUSEA
     Route: 048
     Dates: start: 20181025
  6. DOGMATYL [Concomitant]
     Active Substance: SULPIRIDE
     Indication: DECREASED APPETITE
     Route: 048
     Dates: start: 20181025
  7. CILOSTAZOL. [Concomitant]
     Active Substance: CILOSTAZOL
     Indication: CEREBRAL INFARCTION
     Route: 048
     Dates: start: 20180913
  8. HIRUDOID [Concomitant]
     Active Substance: GLYCOSAMINOGLYCANS
     Indication: DRY SKIN
     Dosage: AS REQUIRED
     Route: 061
     Dates: start: 20180927
  9. ANTEBATE [Concomitant]
     Active Substance: BETAMETHASONE DIPROPIONATE
     Indication: RASH
     Dosage: AS REQUIRED
     Route: 061
     Dates: start: 20181010
  10. DURVALUMAB. [Suspect]
     Active Substance: DURVALUMAB
     Indication: HEPATOCELLULAR CARCINOMA
     Route: 042
     Dates: start: 20180817, end: 20180817
  11. TRICHLORMETHIAZIDE [Concomitant]
     Active Substance: TRICHLORMETHIAZIDE
     Indication: HYPERTENSION
     Route: 048
     Dates: start: 20180906
  12. REBAMIPIDE [Concomitant]
     Active Substance: REBAMIPIDE
     Indication: CHRONIC GASTRITIS
     Route: 048
     Dates: start: 20180913

REACTIONS (1)
  - Disuse syndrome [Not Recovered/Not Resolved]

NARRATIVE: CASE EVENT DATE: 20181101
